FAERS Safety Report 21132409 (Version 20)
Quarter: 2025Q1

REPORT INFORMATION
  Report Type: Report from Study
  Country: MX (occurrence: MX)
  Receive Date: 20220726
  Receipt Date: 20250326
  Transmission Date: 20250408
  Serious: Yes (Other)
  Sender: TAKEDA
  Company Number: MX-TAKEDA-2022TUS038252

PATIENT
  Age: 49 Year
  Sex: Female

DRUGS (9)
  1. ICATIBANT [Suspect]
     Active Substance: ICATIBANT ACETATE
     Indication: Hereditary angioedema
  2. ICATIBANT [Suspect]
     Active Substance: ICATIBANT ACETATE
  3. ICATIBANT [Suspect]
     Active Substance: ICATIBANT ACETATE
  4. ICATIBANT [Suspect]
     Active Substance: ICATIBANT ACETATE
  5. ICATIBANT [Suspect]
     Active Substance: ICATIBANT ACETATE
  6. TOPIRAMATE [Suspect]
     Active Substance: TOPIRAMATE
     Indication: Product used for unknown indication
  7. NADROPARIN CALCIUM [Concomitant]
     Active Substance: NADROPARIN CALCIUM
  8. DEFLAZACORT [Concomitant]
     Active Substance: DEFLAZACORT
  9. ACETAMINOPHEN [Concomitant]
     Active Substance: ACETAMINOPHEN

REACTIONS (24)
  - Pyrexia [Recovering/Resolving]
  - Application site pain [Recovered/Resolved]
  - Urinary tract infection [Recovering/Resolving]
  - Crying [Unknown]
  - Nightmare [Unknown]
  - Insomnia [Unknown]
  - Localised oedema [Recovered/Resolved]
  - Decreased appetite [Recovered/Resolved]
  - Hyperhidrosis [Recovered/Resolved]
  - Malaise [Unknown]
  - Dysuria [Unknown]
  - Discomfort [Recovering/Resolving]
  - Influenza [Unknown]
  - Diarrhoea [Recovered/Resolved]
  - Eye oedema [Unknown]
  - Nausea [Recovered/Resolved]
  - COVID-19 [Recovering/Resolving]
  - Fall [Recovering/Resolving]
  - Stress [Recovered/Resolved]
  - Pharyngitis [Not Recovered/Not Resolved]
  - Influenza like illness [Recovering/Resolving]
  - Swollen tear duct [Recovered/Resolved]
  - Product use issue [Unknown]
  - Stress at work [Not Recovered/Not Resolved]

NARRATIVE: CASE EVENT DATE: 20220604
